FAERS Safety Report 18584848 (Version 1)
Quarter: 2020Q4

REPORT INFORMATION
  Report Type: Spontaneous
  Country: US (occurrence: US)
  Receive Date: 20201204
  Receipt Date: 20201204
  Transmission Date: 20210114
  Serious: Yes (Hospitalization)
  Sender: FDA-Public Use
  Company Number: None

PATIENT
  Age: 65 Year
  Sex: Male
  Weight: 113 kg

DRUGS (1)
  1. BAMLANIVIMAB. [Suspect]
     Active Substance: BAMLANIVIMAB
     Indication: COVID-19
     Dosage: ?          OTHER FREQUENCY:X1;?
     Route: 042
     Dates: start: 20201203, end: 20201203

REACTIONS (5)
  - Oxygen saturation decreased [None]
  - Blood pressure increased [None]
  - Chills [None]
  - Pyrexia [None]
  - Chest X-ray abnormal [None]

NARRATIVE: CASE EVENT DATE: 20201203
